FAERS Safety Report 11972617 (Version 1)
Quarter: 2016Q1

REPORT INFORMATION
  Report Type: Spontaneous
  Country: US (occurrence: US)
  Receive Date: 20160128
  Receipt Date: 20160128
  Transmission Date: 20160526
  Serious: Yes (Other)
  Sender: FDA-Public Use
  Company Number: US-BRISTOL-MYERS SQUIBB COMPANY-16748626

PATIENT
  Age: 1 Day
  Sex: Female
  Weight: 3.65 kg

DRUGS (2)
  1. CITALOPRAM [Concomitant]
     Active Substance: CITALOPRAM HYDROBROMIDE
     Indication: PRODUCT USED FOR UNKNOWN INDICATION
     Dosage: 20 MG, QD
     Route: 064
  2. ABILIFY [Suspect]
     Active Substance: ARIPIPRAZOLE
     Indication: PRODUCT USED FOR UNKNOWN INDICATION
     Dosage: 10 MG, QD
     Route: 064

REACTIONS (5)
  - Restlessness [Recovering/Resolving]
  - Feeding disorder [Recovering/Resolving]
  - Breech presentation [Unknown]
  - Foetal exposure during pregnancy [Recovered/Resolved]
  - Respiratory distress [Recovered/Resolved]
